FAERS Safety Report 11966282 (Version 1)
Quarter: 2016Q1

REPORT INFORMATION
  Report Type: Spontaneous
  Country: US (occurrence: US)
  Receive Date: 20160127
  Receipt Date: 20160127
  Transmission Date: 20160526
  Serious: Yes (Hospitalization, Other)
  Sender: FDA-Public Use
  Company Number: US-DSJP-DSU-2015-134072

PATIENT

DRUGS (5)
  1. BENICAR [Suspect]
     Active Substance: OLMESARTAN MEDOXOMIL
     Indication: HYPERTENSION
     Dosage: 40 MG, QD
     Dates: start: 2007, end: 2010
  2. BENICAR HCT [Suspect]
     Active Substance: HYDROCHLOROTHIAZIDE\OLMESARTAN MEDOXOMIL
     Dosage: 40-25 MG, QD
  3. BENICAR HCT [Suspect]
     Active Substance: HYDROCHLOROTHIAZIDE\OLMESARTAN MEDOXOMIL
     Indication: HYPERTENSION
     Dosage: 40-12.5 MG, QD
     Dates: start: 2007, end: 2010
  4. COREG CR [Concomitant]
     Active Substance: CARVEDILOL PHOSPHATE
     Indication: PRODUCT USED FOR UNKNOWN INDICATION
     Dosage: 40 MG, QD
     Dates: start: 2009, end: 2010
  5. POTASSIUM CHLORIDE. [Concomitant]
     Active Substance: POTASSIUM CHLORIDE
     Indication: PRODUCT USED FOR UNKNOWN INDICATION
     Dosage: 10 MG, QD
     Dates: start: 2008, end: 2010

REACTIONS (18)
  - Cholelithiasis [Unknown]
  - Granulomatous liver disease [Unknown]
  - Malabsorption [Not Recovered/Not Resolved]
  - Dizziness [Unknown]
  - Rectal polyp [Unknown]
  - Dyspepsia [Unknown]
  - Splenic granuloma [Unknown]
  - Hypotension [Unknown]
  - Coeliac disease [Unknown]
  - Diverticulum [Unknown]
  - Anaemia [Unknown]
  - Renal cyst [Unknown]
  - Haemorrhoids [Unknown]
  - Abdominal lymphadenopathy [Unknown]
  - Constipation [Unknown]
  - Acute kidney injury [Unknown]
  - Rectal haemorrhage [Recovered/Resolved]
  - Hepatic cyst [Unknown]

NARRATIVE: CASE EVENT DATE: 2009
